FAERS Safety Report 8519927 (Version 5)
Quarter: 2014Q1

REPORT INFORMATION
  Report Type: Spontaneous
  Country: US (occurrence: US)
  Receive Date: 20120418
  Receipt Date: 20140124
  Transmission Date: 20141002
  Serious: Yes (Hospitalization, Other)
  Sender: FDA-Public Use
  Company Number: US-ASTRAZENECA-2011SE41541

PATIENT
  Age: 49 Year
  Sex: Female

DRUGS (16)
  1. NEXIUM [Suspect]
     Indication: GASTROOESOPHAGEAL REFLUX DISEASE
     Route: 048
     Dates: start: 20070820
  2. NEXIUM [Suspect]
     Indication: GASTROOESOPHAGEAL REFLUX DISEASE
     Dosage: ONCE A DAY MORNING
     Route: 048
     Dates: start: 2008
  3. NEXIUM [Suspect]
     Indication: GASTROOESOPHAGEAL REFLUX DISEASE
     Route: 048
     Dates: start: 20080901
  4. TUMS/ TUM OTC [Concomitant]
     Dosage: AS NEEDED
  5. TUMS/ TUM OTC [Concomitant]
     Dates: start: 2006
  6. ROLAIDS [Concomitant]
     Dosage: AS NEEDED
  7. GABAPENTIN [Concomitant]
     Indication: PAIN
  8. ALKA SELTZER OTC [Concomitant]
     Indication: DYSPEPSIA
  9. ROLAID OTC [Concomitant]
     Indication: DYSPEPSIA
     Dates: start: 2006, end: 2007
  10. TAGANET HD OTC [Concomitant]
     Indication: DYSPEPSIA
     Dates: start: 2007
  11. PEPCID [Concomitant]
     Dates: start: 2005, end: 2006
  12. ESTRADIOL [Concomitant]
     Dates: start: 20081217
  13. PROMETHAZINE [Concomitant]
     Indication: NAUSEA
     Dates: start: 20081217
  14. CYCLOBENZAPRINE [Concomitant]
     Dates: start: 20090326
  15. CEPHALEXIN [Concomitant]
     Dates: start: 20100806
  16. PREDNISONE [Concomitant]
     Dates: start: 20101209

REACTIONS (10)
  - Back disorder [Unknown]
  - Sacroiliitis [Unknown]
  - Osteoporosis [Unknown]
  - Bone disorder [Unknown]
  - Emotional distress [Unknown]
  - Fracture [Unknown]
  - Foot fracture [Unknown]
  - Gait disturbance [Unknown]
  - Pain [Unknown]
  - Osteopenia [Unknown]
